FAERS Safety Report 7911716-4 (Version None)
Quarter: 2011Q4

REPORT INFORMATION
  Report Type: 
  Country: None (occurrence: None)
  Receive Date: 20111109
  Receipt Date: 20111027
  Transmission Date: 20120403
  Serious: Yes (Death)
  Sender: FDA-Public Use
  Company Number: 2011S1001500

PATIENT
  Age: 50 Year
  Sex: Male

DRUGS (1)
  1. LIVALO [Suspect]
     Dosage: 4 MG; PO
     Route: 048
     Dates: start: 20110101, end: 20110101

REACTIONS (2)
  - DEVICE FAILURE [None]
  - CARDIOVASCULAR DISORDER [None]
